FAERS Safety Report 12772132 (Version 1)
Quarter: 2016Q3

REPORT INFORMATION
  Report Type: Spontaneous
  Country: US (occurrence: US)
  Receive Date: 20160922
  Receipt Date: 20160922
  Transmission Date: 20161109
  Serious: No
  Sender: FDA-Public Use
  Company Number: US-WATSON-2016-16683

PATIENT
  Age: 76 Year
  Sex: Female

DRUGS (4)
  1. ^CAUDAL SHOTS^ [Concomitant]
     Indication: SPINAL OPERATION
     Dosage: 3 MONTHS ON, 3 MONTHS OFF
     Route: 065
  2. LIDOCAINE HYDROCHLORIDE (WATSON LABORATORIES) [Suspect]
     Active Substance: LIDOCAINE HYDROCHLORIDE
     Indication: JOINT INJURY
  3. LIDOCAINE HYDROCHLORIDE (WATSON LABORATORIES) [Suspect]
     Active Substance: LIDOCAINE HYDROCHLORIDE
     Indication: KNEE ARTHROPLASTY
  4. LIDOCAINE HYDROCHLORIDE (WATSON LABORATORIES) [Suspect]
     Active Substance: LIDOCAINE HYDROCHLORIDE
     Indication: SPINAL OPERATION
     Dosage: UP TO 5 PATCHES PER DAY
     Route: 062

REACTIONS (1)
  - Drug ineffective [Not Recovered/Not Resolved]
